FAERS Safety Report 6765616-6 (Version None)
Quarter: 2010Q2

REPORT INFORMATION
  Report Type: 
  Country: None (occurrence: None)
  Receive Date: 20100611
  Receipt Date: 20100601
  Transmission Date: 20101027
  Serious: Yes (Other)
  Sender: FDA-Public Use
  Company Number: GB-ELI_LILLY_AND_COMPANY-GB201006001290

PATIENT
  Sex: Female

DRUGS (1)
  1. BYETTA [Suspect]
     Dosage: 10 UG, 2/D

REACTIONS (6)
  - ASTHENIA [None]
  - CATARACT [None]
  - FATIGUE [None]
  - HEADACHE [None]
  - RETINAL DISORDER [None]
  - SOMNOLENCE [None]
